FAERS Safety Report 6039513-8 (Version None)
Quarter: 2009Q1

REPORT INFORMATION
  Report Type: 
  Country: None (occurrence: None)
  Receive Date: 20090107
  Receipt Date: 20081215
  Transmission Date: 20090719
  Serious: Yes (Hospitalization)
  Sender: FDA-Public Use
  Company Number: FPI-08-PRO-0318

PATIENT
  Age: 72 Year
  Sex: Female

DRUGS (2)
  1. PROSED DS [Suspect]
     Indication: CYSTITIS INTERSTITIAL
     Dosage: 1 TABLET/ Q6H, PR
     Route: 054
     Dates: start: 20081208, end: 20081213
  2. DITROPAN [Concomitant]

REACTIONS (1)
  - ATRIAL FIBRILLATION [None]
